FAERS Safety Report 19740638 (Version 2)
Quarter: 2021Q3

REPORT INFORMATION
  Report Type: Spontaneous
  Country: US (occurrence: US)
  Receive Date: 20210825
  Receipt Date: 20210901
  Transmission Date: 20211014
  Serious: No
  Sender: FDA-Public Use
  Company Number: US-BAUSCH-BL-2021-027118

PATIENT
  Age: 68 Year
  Sex: Male

DRUGS (2)
  1. ARESTIN [Suspect]
     Active Substance: MINOCYCLINE HYDROCHLORIDE
  2. ARESTIN [Suspect]
     Active Substance: MINOCYCLINE HYDROCHLORIDE
     Indication: TOOTH DISORDER
     Dosage: GOT 3 ADMINISTRATIONS OF ARESTIN FROM DENTIST
     Route: 065

REACTIONS (2)
  - Eczema [Recovering/Resolving]
  - Dermatitis allergic [Not Recovered/Not Resolved]
